FAERS Safety Report 17593299 (Version 2)
Quarter: 2020Q2

REPORT INFORMATION
  Report Type: Report from Study
  Country: US (occurrence: US)
  Receive Date: 20200328
  Receipt Date: 20200410
  Transmission Date: 20200713
  Serious: Yes (Other)
  Sender: FDA-Public Use
  Company Number: NVSC2020US084530

PATIENT
  Age: 70 Year
  Sex: Male

DRUGS (1)
  1. ENTRESTO [Suspect]
     Active Substance: SACUBITRIL\VALSARTAN
     Indication: CARDIAC FAILURE
     Dosage: 1 DF (SACUBITRIL 24 MG, VALSARTAN 26 MG), BID
     Route: 048
     Dates: start: 202001

REACTIONS (2)
  - Coronavirus test positive [Unknown]
  - Weight decreased [Unknown]

NARRATIVE: CASE EVENT DATE: 2020
